FAERS Safety Report 23385337 (Version 1)
Quarter: 2024Q1

REPORT INFORMATION
  Report Type: Spontaneous
  Country: US (occurrence: US)
  Receive Date: 20240110
  Receipt Date: 20240110
  Transmission Date: 20240410
  Serious: No
  Sender: FDA-Public Use
  Company Number: US-GLENMARK PHARMACEUTICALS-2023GMK086282

PATIENT

DRUGS (2)
  1. AZELAIC ACID [Suspect]
     Active Substance: AZELAIC ACID
     Indication: Rosacea
     Dosage: BID (TWICE A DAY, TWO WEEKS)
     Route: 061
     Dates: start: 20231013
  2. AZELAIC ACID [Suspect]
     Active Substance: AZELAIC ACID
     Indication: Rosacea

REACTIONS (8)
  - Chest pain [Unknown]
  - Chest discomfort [Unknown]
  - Vision blurred [Unknown]
  - Heart rate increased [Unknown]
  - Throat tightness [Unknown]
  - Red blood cell count decreased [Unknown]
  - Expired product administered [Unknown]
  - Dyspnoea [Unknown]

NARRATIVE: CASE EVENT DATE: 20231001
